FAERS Safety Report 5733609-3 (Version None)
Quarter: 2008Q2

REPORT INFORMATION
  Report Type: 
  Country: None (occurrence: None)
  Receive Date: 20080509
  Receipt Date: 20080428
  Transmission Date: 20081010
  Serious: Yes (Hospitalization, Other)
  Sender: FDA-Public Use
  Company Number: FR-ROCHE-562496

PATIENT
  Age: 32 Year
  Sex: Male

DRUGS (1)
  1. INTERFERON ALFA-2A [Suspect]
     Route: 065
     Dates: start: 20020301, end: 20030301

REACTIONS (3)
  - HAEMATURIA [None]
  - KIDNEY TRANSPLANT REJECTION [None]
  - TRANSPLANT REJECTION [None]
